FAERS Safety Report 16936413 (Version 2)
Quarter: 2019Q4

REPORT INFORMATION
  Report Type: Spontaneous
  Country: CH (occurrence: CH)
  Receive Date: 20191018
  Receipt Date: 20191108
  Transmission Date: 20200122
  Serious: Yes (Hospitalization, Other)
  Sender: FDA-Public Use
  Company Number: CH-PFIZER INC-2019447770

PATIENT
  Age: 71 Year
  Sex: Female

DRUGS (13)
  1. CASPOFUNGIN [Suspect]
     Active Substance: CASPOFUNGIN
     Indication: SYSTEMIC MYCOSIS
     Dosage: 50 MG, 1X/DAY
     Route: 041
     Dates: start: 20190822, end: 20190825
  2. CIPROFLOXACIN. [Concomitant]
     Active Substance: CIPROFLOXACIN
     Dosage: UNK
     Dates: start: 20190828, end: 20190904
  3. METRONIDAZOLE. [Concomitant]
     Active Substance: METRONIDAZOLE
     Dosage: UNK
     Dates: start: 20190828, end: 20190904
  4. ISAVUCONAZOLE [Concomitant]
     Active Substance: ISAVUCONAZOLE
     Dosage: 200 MG, 1X/DAY
     Dates: start: 20190830
  5. PIPERACILLIN/TAZOBACTAM [Concomitant]
     Active Substance: PIPERACILLIN SODIUM\TAZOBACTAM SODIUM
     Dosage: UNK
     Dates: start: 20190815, end: 20190828
  6. CYTOSAR [Suspect]
     Active Substance: CYTARABINE
     Indication: ACUTE MYELOID LEUKAEMIA
     Dosage: 330 MG, 1X/DAY CYCLIC
     Route: 041
     Dates: start: 20190806
  7. DAUNOBLASTIN [Suspect]
     Active Substance: DAUNORUBICIN HYDROCHLORIDE
     Indication: ACUTE MYELOID LEUKAEMIA
     Dosage: 74.25 MG, 1X/DAY, D1-D3
     Route: 041
     Dates: start: 20190806, end: 20190808
  8. AMBISOME [Suspect]
     Active Substance: AMPHOTERICIN B
     Indication: SYSTEMIC MYCOSIS
     Dosage: 200 MG, 1X/DAY
     Route: 041
     Dates: start: 20190825, end: 20190830
  9. SPRYCEL [Suspect]
     Active Substance: DASATINIB
     Indication: ACUTE MYELOID LEUKAEMIA
     Dosage: 140 MG, 1X/DAY
     Route: 048
     Dates: start: 20190809, end: 20190909
  10. IMATINIB. [Suspect]
     Active Substance: IMATINIB MESYLATE
     Indication: ACUTE MYELOID LEUKAEMIA
     Dosage: 400 MG, 2X/DAY CYCLIC
     Route: 048
     Dates: start: 20190807, end: 20190808
  11. CYTARABINE. [Concomitant]
     Active Substance: CYTARABINE
     Dosage: 30 MG, UNK
     Route: 037
     Dates: start: 20190807, end: 20190917
  12. HYDROCORTISONE. [Concomitant]
     Active Substance: HYDROCORTISONE
     Dosage: 30 MG, UNK
     Route: 037
     Dates: start: 20190807, end: 20190917
  13. METHOTREXATE. [Concomitant]
     Active Substance: METHOTREXATE
     Dosage: 12.5 MG, UNK
     Route: 037
     Dates: start: 20190807, end: 20190917

REACTIONS (9)
  - Streptococcal bacteraemia [Recovered/Resolved]
  - Toxic skin eruption [Recovered/Resolved]
  - Pleural effusion [Unknown]
  - Electrocardiogram QT prolonged [Unknown]
  - Large intestine infection [Recovered/Resolved]
  - Cardiac failure acute [Recovering/Resolving]
  - Tumour lysis syndrome [Recovered/Resolved]
  - Fungal infection [Recovered/Resolved]
  - Disseminated intravascular coagulation [Recovered/Resolved]

NARRATIVE: CASE EVENT DATE: 20190815
